FAERS Safety Report 23272824 (Version 1)
Quarter: 2023Q4

REPORT INFORMATION
  Report Type: Spontaneous
  Country: GB (occurrence: GB)
  Receive Date: 20231207
  Receipt Date: 20231207
  Transmission Date: 20240109
  Serious: Yes (Hospitalization, Other)
  Sender: FDA-Public Use
  Company Number: GB-SA-SAC20231204000909

PATIENT
  Age: 9 Year
  Sex: Female

DRUGS (1)
  1. VANDETANIB [Suspect]
     Active Substance: VANDETANIB
     Indication: Medullary thyroid cancer
     Dosage: 100 MG
     Route: 048
     Dates: start: 20230409, end: 20231124

REACTIONS (3)
  - Biliary dilatation [Recovering/Resolving]
  - Hepatic enzyme increased [Recovering/Resolving]
  - Cholelithiasis [Recovering/Resolving]

NARRATIVE: CASE EVENT DATE: 20230101
